FAERS Safety Report 5615725-X (Version None)
Quarter: 2008Q1

REPORT INFORMATION
  Report Type: 
  Country: None (occurrence: None)
  Receive Date: 20080201
  Receipt Date: 20080124
  Transmission Date: 20080703
  Serious: Yes (Other)
  Sender: FDA-Public Use
  Company Number: GXKR2008GB01105

PATIENT
  Age: 39 Year
  Sex: Female
  Weight: 60 kg

DRUGS (4)
  1. ZOLPIDEM [Suspect]
     Indication: INSOMNIA
     Dosage: 10 MG, QD, ORAL
     Route: 048
     Dates: start: 20071231, end: 20080113
  2. AMOXICILLIN [Concomitant]
  3. CODEINE PHOSPHATE AND ACETAMINOPHEN [Concomitant]
  4. OMEPRAZOLE [Concomitant]

REACTIONS (2)
  - OPISTHOTONUS [None]
  - OXYGEN SATURATION DECREASED [None]
